FAERS Safety Report 5043192-6 (Version None)
Quarter: 2006Q2

REPORT INFORMATION
  Report Type: 
  Country: None (occurrence: None)
  Receive Date: 20060629
  Receipt Date: 20060616
  Transmission Date: 20061013
  Serious: Yes (Other)
  Sender: FDA-Public Use
  Company Number: 2006-122

PATIENT
  Age: 61 Year
  Sex: Female

DRUGS (10)
  1. CITALOPRAM HYDROBROMIDE [Suspect]
     Indication: ANXIETY
     Dosage: 10MG DAILY ORALLY
     Route: 048
     Dates: start: 20060426, end: 20060516
  2. AMPICILLIN [Concomitant]
  3. BECLOMETHASONE DIPROPIONATE [Concomitant]
  4. CARBOCISTEINE [Concomitant]
  5. IPRATROPIUM BROMIDE [Concomitant]
  6. LANSOPRAZOLE [Concomitant]
  7. PREDNISOLONE [Concomitant]
  8. SALBUTAMOL [Concomitant]
  9. SEREVENT [Concomitant]
  10. SLO-PHYLLIN [Concomitant]

REACTIONS (6)
  - BLADDER DISORDER [None]
  - BRONCHOSPASM [None]
  - ECZEMA [None]
  - LUNG DISORDER [None]
  - RASH GENERALISED [None]
  - URINARY RETENTION [None]
